APPROVED DRUG PRODUCT: PROCAINAMIDE HYDROCHLORIDE
Active Ingredient: PROCAINAMIDE HYDROCHLORIDE
Strength: 500MG
Dosage Form/Route: TABLET, EXTENDED RELEASE;ORAL
Application: A089369 | Product #002
Applicant: ANI PHARMACEUTICALS INC
Approved: Jan 9, 1987 | RLD: No | RS: No | Type: DISCN